FAERS Safety Report 8334658-1 (Version None)
Quarter: 2012Q2

REPORT INFORMATION
  Report Type: 
  Country: None (occurrence: None)
  Receive Date: 20120503
  Receipt Date: 20120420
  Transmission Date: 20120825
  Serious: Yes (Congenital Anomaly)
  Sender: FDA-Public Use
  Company Number: US-ELI_LILLY_AND_COMPANY-US201204007580

PATIENT

DRUGS (2)
  1. PROZAC [Suspect]
     Dosage: UNK, UNKNOWN
  2. PROZAC [Suspect]
     Dosage: UNK, UNKNOWN

REACTIONS (3)
  - TALIPES [None]
  - CLEFT PALATE [None]
  - FOETAL EXPOSURE DURING PREGNANCY [None]
